FAERS Safety Report 4914832-4 (Version None)
Quarter: 2006Q1

REPORT INFORMATION
  Report Type: 
  Country: None (occurrence: None)
  Receive Date: 20060113
  Receipt Date: 20051025
  Transmission Date: 20060701
  Serious: No
  Sender: FDA-Public Use
  Company Number: 2005SP003663

PATIENT
  Age: 82 Year
  Sex: Male

DRUGS (4)
  1. LUNESTA [Suspect]
     Indication: INSOMNIA
     Dosage: ORAL
     Route: 048
     Dates: start: 20050601, end: 20050601
  2. MEFLOQUINE [Concomitant]
  3. BETA BLOCKING AGENTS [Concomitant]
  4. CHOLESTEROL AND TRIGLYCERIDE REDUCERS [Concomitant]

REACTIONS (2)
  - CONFUSIONAL STATE [None]
  - HALLUCINATION [None]
